FAERS Safety Report 10515624 (Version 3)
Quarter: 2015Q1

REPORT INFORMATION
  Report Type: Spontaneous
  Country: US (occurrence: None)
  Receive Date: 20141009
  Receipt Date: 20150226
  Transmission Date: 20150720
  Serious: Yes (Hospitalization)
  Sender: FDA-Public Use
  Company Number: 201409200

PATIENT
  Age: 68 Year
  Sex: Male
  Weight: 117.94 kg

DRUGS (12)
  1. BUPROPION [Concomitant]
     Active Substance: BUPROPION
  2. SIMVASTATIN. [Concomitant]
     Active Substance: SIMVASTATIN
  3. TESTIM [Suspect]
     Active Substance: TESTOSTERONE
     Indication: BLOOD TESTOSTERONE DECREASED
     Dosage: 1 IN 1 D, TRANSDERMAL
     Route: 062
     Dates: start: 20110708, end: 20110926
  4. ASPIRIN (ACETYLSALICYLIC ACID) [Concomitant]
     Active Substance: ASPIRIN
  5. WELLBUTRIN [Concomitant]
     Active Substance: BUPROPION HYDROCHLORIDE
  6. CELEXA [Concomitant]
     Active Substance: CITALOPRAM HYDROBROMIDE
  7. CETIRIZINE [Concomitant]
     Active Substance: CETIRIZINE HYDROCHLORIDE
  8. NAPROXEN. [Concomitant]
     Active Substance: NAPROXEN
  9. VITAMIN D (ERGOCALCIFEROL) [Concomitant]
     Active Substance: ERGOCALCIFEROL
  10. TOPROL (METOPROLOL SUCCINATE) [Concomitant]
  11. METFORMIN [Concomitant]
     Active Substance: METFORMIN HYDROCHLORIDE
  12. LISINOPRIL. [Concomitant]
     Active Substance: LISINOPRIL

REACTIONS (13)
  - General physical condition abnormal [None]
  - Anxiety [None]
  - Blood pressure systolic increased [None]
  - Glycosylated haemoglobin increased [None]
  - Transient ischaemic attack [None]
  - Pain [None]
  - Economic problem [None]
  - Partner stress [None]
  - Emotional disorder [None]
  - Family stress [None]
  - Eructation [None]
  - Multiple injuries [None]
  - Impaired work ability [None]

NARRATIVE: CASE EVENT DATE: 20110926
